FAERS Safety Report 15945082 (Version 1)
Quarter: 2019Q1

REPORT INFORMATION
  Report Type: Report from Study
  Country: ZA (occurrence: ZA)
  Receive Date: 20190211
  Receipt Date: 20190211
  Transmission Date: 20190417
  Serious: Yes (Hospitalization, Other)
  Sender: FDA-Public Use
  Company Number: ZA-SA-2019SA008359

PATIENT
  Age: 74 Year
  Sex: Male

DRUGS (5)
  1. ADCO-SIMVASTATIN [Concomitant]
     Active Substance: SIMVASTATIN
     Dosage: 20 MG, UNK (BED TIME)
     Dates: start: 20181204
  2. INSULIN GLARGINE [Suspect]
     Active Substance: INSULIN GLARGINE
     Dosage: 25 U, QD
     Dates: start: 20181204
  3. OPTISULIN ^AVENTIS^ [Suspect]
     Active Substance: INSULIN GLARGINE
     Dosage: 10 U, QD
     Dates: start: 20181203
  4. INSULIN GLULISINE [Suspect]
     Active Substance: INSULIN GLULISINE
     Dosage: 20 U, TID BEFORE LUNCH,BEFORE SUPPER AND BEFORE BREAKFAST)
     Dates: start: 20181203
  5. CIPLASYL [Concomitant]
     Active Substance: PERINDOPRIL ERBUMINE
     Dosage: 4.4 MG, UNK (BEFORE BREAKFAST)
     Dates: start: 20181204

REACTIONS (5)
  - Blood glucose fluctuation [Not Recovered/Not Resolved]
  - Myocardial ischaemia [Unknown]
  - Injection site swelling [Not Recovered/Not Resolved]
  - Glycosylated haemoglobin increased [Not Recovered/Not Resolved]
  - Hospitalisation [Unknown]

NARRATIVE: CASE EVENT DATE: 20180901
